FAERS Safety Report 18028569 (Version 3)
Quarter: 2021Q2

REPORT INFORMATION
  Report Type: Report from Study
  Country: CH (occurrence: CH)
  Receive Date: 20200715
  Receipt Date: 20210601
  Transmission Date: 20210717
  Serious: Yes (Other)
  Sender: FDA-Public Use
  Company Number: CH-INCYTE CORPORATION-2019IN004658

PATIENT

DRUGS (4)
  1. LITALIR [Concomitant]
     Active Substance: HYDROXYUREA
     Indication: POLYCYTHAEMIA
     Dosage: 1 UKN (UNITS UNSPECIFIED)
     Route: 065
     Dates: start: 201801, end: 20180301
  2. JAKAVI [Suspect]
     Active Substance: RUXOLITINIB
     Indication: POLYCYTHAEMIA VERA
     Dosage: 20 UKN, UNK (UNITS UNSPECIFIED)
     Route: 048
     Dates: start: 20180306
  3. ASPIRIN CARDIO [Concomitant]
     Active Substance: ASPIRIN
     Indication: THROMBOSIS PROPHYLAXIS
     Dosage: 100 UKN (UNITS UNSPECIFIED)
     Route: 065
     Dates: start: 2017
  4. BETASERC [Concomitant]
     Active Substance: BETAHISTINE
     Indication: VERTIGO
     Dosage: 16 UKN (UNITS UNSPECIFIED)
     Route: 065
     Dates: start: 2017

REACTIONS (2)
  - Tuberculosis [Recovered/Resolved]
  - Constipation [Recovered/Resolved]

NARRATIVE: CASE EVENT DATE: 201902
